FAERS Safety Report 10022487 (Version 2)
Quarter: 2014Q2

REPORT INFORMATION
  Report Type: Spontaneous
  Country: US (occurrence: US)
  Receive Date: 20140319
  Receipt Date: 20140418
  Transmission Date: 20141212
  Serious: No
  Sender: FDA-Public Use
  Company Number: US-009507513-1403USA003379

PATIENT
  Sex: Female

DRUGS (4)
  1. OXYTROL FOR WOMEN [Suspect]
     Indication: HYPERTONIC BLADDER
     Dosage: UNK, UNKNOWN
     Route: 062
  2. OXYTROL FOR WOMEN [Suspect]
     Indication: NOCTURIA
  3. PROTONIX [Concomitant]
     Indication: DYSPHAGIA
     Dosage: UNK, BID
  4. PROTONIX [Concomitant]
     Indication: GASTROINTESTINAL INFLAMMATION

REACTIONS (6)
  - Blood pressure fluctuation [Unknown]
  - Heart rate increased [Unknown]
  - Gait disturbance [Recovering/Resolving]
  - Pain [Recovering/Resolving]
  - Fatigue [Unknown]
  - Drug ineffective [Unknown]
